FAERS Safety Report 17197464 (Version 5)
Quarter: 2020Q2

REPORT INFORMATION
  Report Type: Report from Study
  Country: CA (occurrence: CA)
  Receive Date: 20191224
  Receipt Date: 20200523
  Transmission Date: 20200713
  Serious: Yes (Hospitalization, Other)
  Sender: FDA-Public Use
  Company Number: NVSC2019CA050790

PATIENT
  Sex: Female

DRUGS (3)
  1. SALAZOPYRIN [Suspect]
     Active Substance: SULFASALAZINE
     Indication: PRODUCT USED FOR UNKNOWN INDICATION
     Dosage: UNK
     Route: 065
  2. SULFASALAZINE. [Concomitant]
     Active Substance: SULFASALAZINE
     Indication: PRODUCT USED FOR UNKNOWN INDICATION
     Route: 065
  3. METHOTREXATE SODIUM. [Suspect]
     Active Substance: METHOTREXATE SODIUM
     Indication: RHEUMATOID ARTHRITIS
     Dosage: UNK
     Route: 058

REACTIONS (15)
  - Multiple fractures [Unknown]
  - Ill-defined disorder [Unknown]
  - Renal failure [Unknown]
  - Back disorder [Unknown]
  - Hepatitis [Unknown]
  - Rheumatoid arthritis [Unknown]
  - Skin lesion [Unknown]
  - Oedema peripheral [Not Recovered/Not Resolved]
  - Pain [Unknown]
  - Spinal fracture [Unknown]
  - Gait disturbance [Unknown]
  - Renal disorder [Unknown]
  - Wound [Not Recovered/Not Resolved]
  - Red blood cell sedimentation rate increased [Unknown]
  - Liver function test abnormal [Unknown]
